FAERS Safety Report 20044734 (Version 4)
Quarter: 2022Q1

REPORT INFORMATION
  Report Type: Report from Study
  Country: US (occurrence: US)
  Receive Date: 20211108
  Receipt Date: 20220110
  Transmission Date: 20220423
  Serious: Yes (Other)
  Sender: FDA-Public Use
  Company Number: US-SA-SAC20210921000780

PATIENT
  Age: 68 Year
  Sex: Female

DRUGS (2)
  1. DUPILUMAB [Suspect]
     Active Substance: DUPILUMAB
     Indication: Dermatitis atopic
     Dosage: 600 MG, 1X
     Route: 058
     Dates: start: 20210922, end: 20210922
  2. DUPILUMAB [Suspect]
     Active Substance: DUPILUMAB
     Dosage: 300 MG, QOW (300MG/2ML)
     Route: 058
     Dates: start: 2021

REACTIONS (3)
  - Polyarthritis [Not Recovered/Not Resolved]
  - Injection site pain [Recovering/Resolving]
  - Injury associated with device [Unknown]

NARRATIVE: CASE EVENT DATE: 20210901
